FAERS Safety Report 7149206-1 (Version None)
Quarter: 2010Q4

REPORT INFORMATION
  Report Type: 
  Country: None (occurrence: None)
  Receive Date: 20101209
  Receipt Date: 20101203
  Transmission Date: 20110411
  Serious: Yes (Other)
  Sender: FDA-Public Use
  Company Number: US-ALEXION-A201000684

PATIENT
  Sex: Female

DRUGS (25)
  1. SOLIRIS [Suspect]
     Indication: PAROXYSMAL NOCTURNAL HAEMOGLOBINURIA
     Dosage: 600 MG, QW
     Route: 042
     Dates: start: 20090805, end: 20090903
  2. SOLIRIS [Suspect]
     Dosage: 900 MG, Q2W
     Route: 042
     Dates: start: 20090910, end: 20100617
  3. SOLIRIS [Suspect]
     Dosage: 1200 MG, Q2W
     Route: 042
     Dates: start: 20100702, end: 20100729
  4. SOLIRIS [Suspect]
     Dosage: 1200 MG, Q12D
     Route: 042
     Dates: start: 20100730
  5. OMEPRAZOLE [Concomitant]
     Indication: GASTROOESOPHAGEAL REFLUX DISEASE
     Dosage: 20 MG, BID
     Route: 048
  6. FERROUS SULFATE [Concomitant]
     Indication: ANAEMIA
     Dosage: 325 MG, BID
     Dates: end: 20090901
  7. FERROUS SULFATE [Concomitant]
     Dosage: 325 MG, QD
  8. FOLIC ACID [Concomitant]
     Indication: ANAEMIA
     Dosage: 1 MG, QD
     Route: 048
  9. NORTRIPTYLINE HCL [Concomitant]
     Indication: PAIN
     Dosage: 150 MG, QD AT HS
     Route: 048
     Dates: start: 20100430
  10. MULTI-VITAMIN [Concomitant]
     Dosage: 1 QD
  11. IMITREX                            /01044802/ [Suspect]
     Indication: HEADACHE
     Dosage: 50 MG, QD (QAM IF HEADACHE)
  12. PERCOCET [Suspect]
     Dosage: 5/325 MG Q4H, PRN
     Route: 048
  13. COMPAZINE [Suspect]
     Dosage: 10 MG, Q8H PRN
     Route: 048
     Dates: start: 20090813
  14. ATARAX [Suspect]
     Dosage: 30 MG, QD
  15. ATARAX [Suspect]
     Dosage: 25 MG, PRN
  16. RESTORIL                           /00393701/ [Suspect]
     Indication: INSOMNIA
     Dosage: 30 MG, QD
     Route: 048
  17. RESTORIL                           /00393701/ [Suspect]
     Dosage: 15 MG, QD (QHS)
     Route: 048
     Dates: end: 20090920
  18. DECADRON [Suspect]
     Dosage: 20 MG, SINGLE
  19. DECADRON [Suspect]
     Dosage: 4 MG, BID (T + W PER SOLIRIS)
  20. TYLENOL W/ CODEINE NO. 3 [Concomitant]
     Dosage: 2 TABS, TID
  21. TOPAMAX [Concomitant]
     Dosage: 25 MG, QD (QHS)
  22. TOPAMAX [Concomitant]
     Dosage: 50 MG, QD (QHS)
  23. TOPAMAX [Concomitant]
     Dosage: 100 MG, QD (QHS)
  24. PEPCID [Concomitant]
     Dosage: 40 MG, QD
     Dates: start: 20091222
  25. POTASSIUM CHLORIDE [Concomitant]
     Dosage: UNK

REACTIONS (13)
  - CONVERSION DISORDER [None]
  - DIARRHOEA [None]
  - HAEMOLYSIS [None]
  - HEADACHE [None]
  - HELICOBACTER GASTRITIS [None]
  - HYPOTENSION [None]
  - INSOMNIA [None]
  - NAUSEA [None]
  - NEUTROPHIL COUNT DECREASED [None]
  - OESOPHAGEAL DISORDER [None]
  - PYREXIA [None]
  - VOMITING [None]
  - WEIGHT DECREASED [None]
